FAERS Safety Report 12849635 (Version 2)
Quarter: 2017Q2

REPORT INFORMATION
  Report Type: Spontaneous
  Country: US (occurrence: US)
  Receive Date: 20161014
  Receipt Date: 20170501
  Transmission Date: 20170830
  Serious: No
  Sender: FDA-Public Use
  Company Number: US-ROCHE-1786038

PATIENT
  Sex: Female

DRUGS (4)
  1. ESBRIET [Suspect]
     Active Substance: PIRFENIDONE
     Indication: PRODUCT USED FOR UNKNOWN INDICATION
     Route: 048
     Dates: start: 20160426
  2. TURMERIC [Concomitant]
     Active Substance: HERBALS\TURMERIC
  3. PREDNISONE. [Concomitant]
     Active Substance: PREDNISONE
  4. NAC (ACETYLCYSTEINE) [Concomitant]

REACTIONS (5)
  - Abdominal pain upper [Unknown]
  - Dyspepsia [Unknown]
  - Bone loss [Unknown]
  - Decreased appetite [Unknown]
  - Red blood cell count decreased [Unknown]
